FAERS Safety Report 8474512-8 (Version None)
Quarter: 2012Q2

REPORT INFORMATION
  Report Type: 
  Country: None (occurrence: None)
  Receive Date: 20120628
  Receipt Date: 20120627
  Transmission Date: 20120825
  Serious: Yes (Other)
  Sender: FDA-Public Use
  Company Number: PHEH2012US012768

PATIENT
  Sex: Male

DRUGS (1)
  1. AREDIA [Suspect]
     Indication: OSTEOPOROSIS

REACTIONS (6)
  - DIVERTICULITIS [None]
  - DYSPEPSIA [None]
  - OESOPHAGEAL OBSTRUCTION [None]
  - ABDOMINAL PAIN [None]
  - DUODENITIS [None]
  - EROSIVE OESOPHAGITIS [None]
